FAERS Safety Report 20149874 (Version 3)
Quarter: 2022Q1

REPORT INFORMATION
  Report Type: Spontaneous
  Country: US (occurrence: None)
  Receive Date: 20211206
  Receipt Date: 20220119
  Transmission Date: 20220424
  Serious: No
  Sender: FDA-Public Use
  Company Number: 2021A800941

PATIENT
  Age: 26106 Day
  Sex: Female
  Weight: 82.6 kg

DRUGS (3)
  1. BYDUREON BCISE [Suspect]
     Active Substance: EXENATIDE
     Indication: Type 2 diabetes mellitus
     Route: 058
  2. BYETTA [Suspect]
     Active Substance: EXENATIDE
     Indication: Type 2 diabetes mellitus
     Route: 058
  3. BYETTA [Suspect]
     Active Substance: EXENATIDE
     Indication: Type 2 diabetes mellitus
     Route: 058

REACTIONS (8)
  - Glycosylated haemoglobin [Unknown]
  - Neuropathy peripheral [Not Recovered/Not Resolved]
  - Macular degeneration [Not Recovered/Not Resolved]
  - Device defective [Unknown]
  - Wrong technique in device usage process [Unknown]
  - Device issue [Unknown]
  - Device mechanical issue [Unknown]
  - Device leakage [Unknown]

NARRATIVE: CASE EVENT DATE: 20211108
